FAERS Safety Report 8277745-9 (Version None)
Quarter: 2012Q2

REPORT INFORMATION
  Report Type: 
  Country: None (occurrence: None)
  Receive Date: 20120412
  Receipt Date: 20120404
  Transmission Date: 20120825
  Serious: Yes (Hospitalization, Other)
  Sender: FDA-Public Use
  Company Number: JP-PFIZER INC-2012078758

PATIENT
  Sex: Female
  Weight: 1.3 kg

DRUGS (3)
  1. CYCLOSPORINE [Concomitant]
  2. SOLU-MEDROL [Suspect]
     Dosage: UNK
     Route: 064
     Dates: start: 20100901
  3. GANCICLOVIR [Concomitant]

REACTIONS (2)
  - FOETAL EXPOSURE DURING PREGNANCY [None]
  - FOETAL GROWTH RESTRICTION [None]
